FAERS Safety Report 22131667 (Version 2)
Quarter: 2023Q4

REPORT INFORMATION
  Report Type: Spontaneous
  Country: JP (occurrence: JP)
  Receive Date: 20230323
  Receipt Date: 20231130
  Transmission Date: 20240109
  Serious: Yes (Hospitalization, Other)
  Sender: FDA-Public Use
  Company Number: JP-MSD-M2023-06498

PATIENT
  Age: 47 Year
  Sex: Female

DRUGS (1)
  1. KEYTRUDA [Suspect]
     Active Substance: PEMBROLIZUMAB
     Indication: Cervix carcinoma stage IV
     Dosage: 200 MILLIGRAM, Q3W
     Route: 041
     Dates: start: 20221227, end: 20221227

REACTIONS (8)
  - Cutaneous symptom [Unknown]
  - Tachycardia [Unknown]
  - Troponin T increased [Unknown]
  - Immune-mediated myositis [Unknown]
  - Immune-mediated myocarditis [Unknown]
  - Blood creatine phosphokinase increased [Unknown]
  - Pain in extremity [Unknown]
  - Coronavirus infection [Unknown]

NARRATIVE: CASE EVENT DATE: 20230101
